FAERS Safety Report 5247724-4 (Version None)
Quarter: 2007Q1

REPORT INFORMATION
  Report Type: 
  Country: None (occurrence: None)
  Receive Date: 20070227
  Receipt Date: 20070221
  Transmission Date: 20070707
  Serious: Yes (Hospitalization)
  Sender: FDA-Public Use
  Company Number: FR-ELI_LILLY_AND_COMPANY-FR200701004626

PATIENT
  Age: 63 Year
  Sex: Male
  Weight: 80 kg

DRUGS (3)
  1. GEMZAR [Suspect]
     Indication: ADENOCARCINOMA PANCREAS
     Dosage: 1000 MG/M2, OTHER
     Route: 042
     Dates: start: 20060704, end: 20061107
  2. VENOFER [Concomitant]
     Indication: ANAEMIA
     Dosage: 200 MG, UNKNOWN
     Route: 042
  3. ARANESP [Concomitant]
     Indication: ANAEMIA
     Dosage: 500 UG, UNKNOWN
     Route: 058

REACTIONS (5)
  - LIVEDO RETICULARIS [None]
  - OEDEMA PERIPHERAL [None]
  - SKIN NECROSIS [None]
  - SKIN ULCER [None]
  - TOXIC SKIN ERUPTION [None]
